FAERS Safety Report 5837549-0 (Version None)
Quarter: 2008Q3

REPORT INFORMATION
  Report Type: 
  Country: None (occurrence: None)
  Receive Date: 20080807
  Receipt Date: 20080728
  Transmission Date: 20090109
  Serious: Yes (Other)
  Sender: FDA-Public Use
  Company Number: US-PFIZER INC-2008063306

PATIENT
  Sex: Male
  Weight: 117.9 kg

DRUGS (2)
  1. LYRICA [Suspect]
     Indication: FIBROMYALGIA
  2. MORPHINE [Concomitant]

REACTIONS (3)
  - GINGIVAL GRAFT [None]
  - PAIN [None]
  - TOOTH EXTRACTION [None]
